FAERS Safety Report 8597172-4 (Version None)
Quarter: 2012Q3

REPORT INFORMATION
  Report Type: 
  Country: None (occurrence: None)
  Receive Date: 20120816
  Receipt Date: 20120810
  Transmission Date: 20120928
  Serious: No
  Sender: FDA-Public Use
  Company Number: US-BIOGENIDEC-2012BI030480

PATIENT
  Age: 48 Year
  Sex: Male

DRUGS (4)
  1. INTERFERON BETA-1A [Concomitant]
     Indication: MULTIPLE SCLEROSIS
     Route: 030
     Dates: start: 20110830
  2. TYSABRI [Suspect]
     Route: 042
     Dates: start: 20120529
  3. TYSABRI [Suspect]
     Route: 042
     Dates: start: 20100330
  4. TYSABRI [Suspect]
     Indication: MULTIPLE SCLEROSIS
     Route: 042
     Dates: start: 20100401

REACTIONS (1)
  - BLISTER [None]
